FAERS Safety Report 25554458 (Version 1)
Quarter: 2025Q3

REPORT INFORMATION
  Report Type: Spontaneous
  Country: US (occurrence: None)
  Receive Date: 20250714
  Receipt Date: 20250714
  Transmission Date: 20251020
  Serious: Yes (Hospitalization)
  Sender: FDA-CTU
  Company Number: None

PATIENT
  Age: 81 Year
  Sex: Female

DRUGS (1)
  1. TAVNEOS [Suspect]
     Active Substance: AVACOPAN
     Dosage: 30 MG TWICE DAILY ORAL
     Route: 048

REACTIONS (2)
  - Loss of consciousness [None]
  - Gait disturbance [None]

NARRATIVE: CASE EVENT DATE: 20250714
